FAERS Safety Report 8147601-5 (Version None)
Quarter: 2012Q1

REPORT INFORMATION
  Report Type: 
  Country: None (occurrence: None)
  Receive Date: 20120218
  Receipt Date: 20120206
  Transmission Date: 20120608
  Serious: Yes (Hospitalization)
  Sender: FDA-Public Use
  Company Number: BR-AMGEN-BRASP2012006675

PATIENT
  Age: 50 Year
  Sex: Female

DRUGS (3)
  1. ENBREL [Suspect]
     Indication: RHEUMATOID ARTHRITIS
     Dosage: UNK
  2. METHOTREXATE SODIUM [Suspect]
     Indication: RHEUMATOID ARTHRITIS
     Dosage: UNK
  3. DIANE [Concomitant]
     Indication: UTERINE LEIOMYOMA
     Dosage: UNK
     Dates: start: 20110901

REACTIONS (3)
  - INFLAMMATION [None]
  - PULMONARY EMBOLISM [None]
  - RHEUMATOID ARTHRITIS [None]
